FAERS Safety Report 19779992 (Version 1)
Quarter: 2021Q3

REPORT INFORMATION
  Report Type: Report from Study
  Country: PA (occurrence: PA)
  Receive Date: 20210902
  Receipt Date: 20210902
  Transmission Date: 20211014
  Serious: Yes (Other)
  Sender: FDA-Public Use
  Company Number: NVSC2021PA195183

PATIENT
  Sex: Male

DRUGS (1)
  1. GILENYA [Suspect]
     Active Substance: FINGOLIMOD HYDROCHLORIDE
     Indication: MULTIPLE SCLEROSIS
     Dosage: 0.5 MG, QD
     Route: 048
     Dates: start: 20210517

REACTIONS (6)
  - COVID-19 [Unknown]
  - Pain [Unknown]
  - Pyrexia [Unknown]
  - Fall [Unknown]
  - Wrist fracture [Unknown]
  - Nasopharyngitis [Unknown]
